FAERS Safety Report 4376821-0 (Version None)
Quarter: 2004Q2

REPORT INFORMATION
  Report Type: 
  Country: None (occurrence: None)
  Receive Date: 20040608
  Receipt Date: 20040510
  Transmission Date: 20050107
  Serious: Yes (Death)
  Sender: FDA-Public Use
  Company Number: M2004-0581

PATIENT
  Age: 65 Year
  Sex: Male

DRUGS (5)
  1. INDOMETHACIN 25MG CAP [Suspect]
     Indication: MULTIPLE SCLEROSIS
     Dosage: 50 MG PO DAILY
     Route: 048
  2. FELODIPINE [Concomitant]
  3. BENDROFLUAZIDE [Concomitant]
  4. PERINDOPRIL [Concomitant]
  5. ATENOLOL [Concomitant]

REACTIONS (1)
  - GASTROINTESTINAL HAEMORRHAGE [None]
